FAERS Safety Report 9863349 (Version 1)
Quarter: 2014Q1

REPORT INFORMATION
  Report Type: Spontaneous
  Country: IT (occurrence: IT)
  Receive Date: 20140203
  Receipt Date: 20140203
  Transmission Date: 20141002
  Serious: Yes (Death)
  Sender: FDA-Public Use
  Company Number: IT-GILEAD-2014-0093415

PATIENT
  Age: 42 Year
  Sex: Male

DRUGS (3)
  1. VIREAD [Suspect]
     Indication: HIV INFECTION
     Route: 065
  2. EMTRIVA [Suspect]
     Indication: HIV INFECTION
     Route: 065
  3. LIPOSOMAL DOXORUBICIN HYDROCHLORIDE [Concomitant]

REACTIONS (1)
  - Drug ineffective [Fatal]
